FAERS Safety Report 7817320-0 (Version None)
Quarter: 2011Q4

REPORT INFORMATION
  Report Type: 
  Country: None (occurrence: None)
  Receive Date: 20111012
  Receipt Date: 20110928
  Transmission Date: 20120403
  Serious: Yes (Other)
  Sender: FDA-Public Use
  Company Number: GB-DEXPHARM-20111440

PATIENT
  Age: 81 Year
  Sex: Female

DRUGS (5)
  1. OMEPRAZOLE [Suspect]
     Indication: GASTROINTESTINAL PAIN
     Dosage: 20 MG MILLIGRAM(S), ORAL
     Route: 048
     Dates: start: 20110819, end: 20110908
  2. DRONEDARONE HCL [Concomitant]
  3. WARFARIN SODIUM [Concomitant]
  4. FEXOFENADINE [Concomitant]
  5. SIMVASTATIN [Concomitant]

REACTIONS (1)
  - GLOMERULAR FILTRATION RATE DECREASED [None]
